FAERS Safety Report 4155209 (Version 3)
Quarter: 2016Q3

REPORT INFORMATION
  Report Type: Spontaneous
  Country: FR (occurrence: FR)
  Receive Date: 20040616
  Receipt Date: 20160826
  Transmission Date: 20161109
  Serious: Yes (Other)
  Sender: FDA-Public Use
  Company Number: FR-BRISTOL-MYERS SQUIBB COMPANY-10605418

PATIENT
  Sex: Female

DRUGS (6)
  1. RETROVIR [Suspect]
     Active Substance: ZIDOVUDINE
     Indication: HIV INFECTION
     Dosage: UNK
     Route: 051
     Dates: start: 19981211, end: 19981211
  2. VITAMINS [Concomitant]
     Active Substance: VITAMINS
     Indication: PRODUCT USED FOR UNKNOWN INDICATION
     Route: 065
  3. I RON [Concomitant]
     Active Substance: FERROUS FUMARATE
     Indication: PRODUCT USED FOR UNKNOWN INDICATION
     Route: 065
  4. VIDEX [Suspect]
     Active Substance: DIDANOSINE
     Indication: HIV INFECTION
     Dosage: UNK
     Route: 048
  5. RETROVIR [Suspect]
     Active Substance: ZIDOVUDINE
     Indication: HIV INFECTION
     Route: 065
  6. BACTRIM [Concomitant]
     Active Substance: SULFAMETHOXAZOLE\TRIMETHOPRIM
     Indication: PRODUCT USED FOR UNKNOWN INDICATION
     Route: 065

REACTIONS (4)
  - Pregnancy [Unknown]
  - Hyperlactacidaemia [Unknown]
  - Tuberculosis [Unknown]
  - Caesarean section [Unknown]

NARRATIVE: CASE EVENT DATE: 19981211
